FAERS Safety Report 14546774 (Version 2)
Quarter: 2018Q1

REPORT INFORMATION
  Report Type: Spontaneous
  Country: US (occurrence: US)
  Receive Date: 20180219
  Receipt Date: 20180320
  Transmission Date: 20180509
  Serious: Yes (Other)
  Sender: FDA-Public Use
  Company Number: US-PFIZER INC-2018067160

PATIENT
  Age: 68 Year
  Sex: Female

DRUGS (6)
  1. XALKORI [Suspect]
     Active Substance: CRIZOTINIB
     Indication: LUNG NEOPLASM MALIGNANT
     Dosage: 250MG CAPSULES BY MOUTH TWICE A DAY
     Route: 048
     Dates: start: 20160517
  2. GABAPENTIN. [Concomitant]
     Active Substance: GABAPENTIN
     Indication: FIBROMYALGIA
     Dosage: 800MG PILL BY MOUTH TWICE A DAY
     Route: 048
  3. TURMERIC [Concomitant]
     Active Substance: HERBALS\TURMERIC
     Indication: INFLAMMATION
     Dosage: 100MG CAPSULE BY MOUTH TWICE DAY
     Route: 048
  4. HYDROCHLOROTHIAZIDE. [Concomitant]
     Active Substance: HYDROCHLOROTHIAZIDE
     Indication: FLUID RETENTION
     Dosage: 12.5MG PILL BY MOUTH ONCE A DAY
     Route: 048
     Dates: start: 2017
  5. PRILOSEC [Concomitant]
     Active Substance: OMEPRAZOLE MAGNESIUM
     Indication: GASTROOESOPHAGEAL REFLUX DISEASE
     Dosage: 20MG PILL BY MOUTH ONCE A DAY
     Route: 048
  6. NALTREXONE [Concomitant]
     Active Substance: NALTREXONE
     Indication: IMMUNE SYSTEM DISORDER
     Dosage: 4.5MG PILL BY MOUTH ONCE A DAY
     Route: 048
     Dates: start: 201703

REACTIONS (4)
  - Nausea [Unknown]
  - Pleural effusion [Unknown]
  - Diarrhoea [Unknown]
  - Influenza [Recovering/Resolving]

NARRATIVE: CASE EVENT DATE: 20180210
